FAERS Safety Report 7667991-7 (Version None)
Quarter: 2011Q3

REPORT INFORMATION
  Report Type: 
  Country: None (occurrence: None)
  Receive Date: 20110808
  Receipt Date: 20110801
  Transmission Date: 20111222
  Serious: Yes (Hospitalization)
  Sender: FDA-Public Use
  Company Number: FR-BRISTOL-MYERS SQUIBB COMPANY-15944960

PATIENT
  Age: 57 Year
  Sex: Male

DRUGS (8)
  1. ASPIRIN [Suspect]
     Indication: ISCHAEMIC CARDIOMYOPATHY
     Dosage: KARDEGIC 75 MG POWDER FOR ORAL SOLUTION.
     Route: 048
     Dates: start: 20101101
  2. POTASSIUM CHLORIDE [Concomitant]
     Route: 048
     Dates: start: 20110513, end: 20110607
  3. RAMIPRIL [Concomitant]
     Indication: ISCHAEMIC CARDIOMYOPATHY
     Route: 048
     Dates: start: 20101101
  4. OMACOR [Concomitant]
     Route: 048
     Dates: start: 20101101
  5. CRESTOR [Concomitant]
     Dosage: CRESTOR 10 MG FILM-COATED TABLET
     Route: 048
     Dates: start: 20101101
  6. COUMADIN [Suspect]
     Indication: ATRIAL FIBRILLATION
     Dosage: SCORED TABLET 5 MG
     Route: 048
     Dates: start: 20110513, end: 20110602
  7. DISCOTRINE [Concomitant]
     Indication: ANGINA PECTORIS
     Route: 062
     Dates: start: 20101101, end: 20110607
  8. BISOPROLOL FUMARATE [Concomitant]
     Indication: ISCHAEMIC STROKE
     Dosage: CARDENSIEL (BISOPROLOL) 5 MG SCORED TABLET
     Route: 048
     Dates: start: 20101101

REACTIONS (2)
  - IMPLANT SITE HAEMATOMA [None]
  - IMPLANT SITE INFECTION [None]
